FAERS Safety Report 19626314 (Version 1)
Quarter: 2021Q3

REPORT INFORMATION
  Report Type: Spontaneous
  Country: AU (occurrence: AU)
  Receive Date: 20210729
  Receipt Date: 20210729
  Transmission Date: 20211014
  Serious: Yes (Hospitalization)
  Sender: FDA-Public Use
  Company Number: AU-STRIDES ARCOLAB LIMITED-2021SP025534

PATIENT
  Age: 81 Year
  Sex: Female

DRUGS (3)
  1. RAMIPRIL. [Concomitant]
     Active Substance: RAMIPRIL
     Indication: HYPERTENSION
     Dosage: 2.5 MILLIGRAM PER DAY
     Route: 065
  2. PRAMIPEXOLE DIHYDROCHLORIDE. [Suspect]
     Active Substance: PRAMIPEXOLE DIHYDROCHLORIDE
     Indication: PARKINSON^S DISEASE
     Dosage: 1.5 MILLIGRAM PER DAY, MODIFIED RELEASE
     Route: 065
  3. LEVODOPA/BENSERAZIDE [Interacting]
     Active Substance: BENSERAZIDE\LEVODOPA
     Indication: PARKINSON^S DISEASE
     Dosage: THRICE DAILY; FROM FOUR WEEKS PRIOR TO ADMISSION
     Route: 065

REACTIONS (2)
  - Drug interaction [Unknown]
  - Oedema peripheral [Recovered/Resolved]
